FAERS Safety Report 13160318 (Version 3)
Quarter: 2017Q2

REPORT INFORMATION
  Report Type: Report from Study
  Country: US (occurrence: US)
  Receive Date: 20170127
  Receipt Date: 20170405
  Transmission Date: 20170830
  Serious: Yes (Hospitalization, Other)
  Sender: FDA-Public Use
  Company Number: US-GILEAD-2017-0253260

PATIENT
  Age: 66 Year
  Sex: Female
  Weight: 68.1 kg

DRUGS (19)
  1. VICKS DAYQUIL [Concomitant]
     Active Substance: DEXTROMETHORPHAN HYDROBROMIDE\GUAIFENESIN
     Indication: UPPER RESPIRATORY TRACT INFECTION
     Route: 048
     Dates: start: 20160923
  2. IDELALISIB [Suspect]
     Active Substance: IDELALISIB
     Dosage: UNK, QD
     Route: 048
     Dates: start: 20170108, end: 20170125
  3. POTASSIUM CHLORIDE. [Concomitant]
     Active Substance: POTASSIUM CHLORIDE
     Dosage: UNK
     Route: 042
     Dates: start: 20170109
  4. ACYCLOVIR                          /00587301/ [Concomitant]
     Active Substance: ACYCLOVIR
     Indication: PROPHYLAXIS
     Route: 048
     Dates: start: 20160510
  5. SODIUM PHOSPHATE [Concomitant]
     Active Substance: SODIUM PHOSPHATE
     Indication: HYPOPHOSPHATAEMIA
     Route: 042
     Dates: start: 20170109
  6. TIRABRUTINIB [Suspect]
     Active Substance: TIRABRUTINIB
     Dosage: 40 MG, QD
     Route: 048
     Dates: start: 20170126
  7. SALIVA SUBSTITUTE [Concomitant]
     Active Substance: CARBOXYMETHYLCELLULOSE SODIUM\SORBINICATE
     Indication: DRY MOUTH
     Route: 050
     Dates: start: 20170109
  8. DAPSONE. [Concomitant]
     Active Substance: DAPSONE
     Indication: ANTIFUNGAL PROPHYLAXIS
     Route: 048
     Dates: start: 20161006
  9. IDELALISIB [Suspect]
     Active Substance: IDELALISIB
     Indication: B-CELL LYMPHOMA
     Dosage: 100 MG, QD
     Route: 048
     Dates: start: 20160729, end: 20170108
  10. IDELALISIB [Suspect]
     Active Substance: IDELALISIB
     Dosage: 50 MG, QD
     Route: 048
     Dates: start: 20170126
  11. LEVOTHYROXINE. [Concomitant]
     Active Substance: LEVOTHYROXINE
     Indication: HYPOTHYROIDISM
     Route: 048
     Dates: start: 20131001
  12. TIRABRUTINIB [Suspect]
     Active Substance: TIRABRUTINIB
     Indication: B-CELL LYMPHOMA
     Dosage: 80 MG, QD
     Route: 048
     Dates: start: 20160728, end: 20161209
  13. VICKS NYQUIL [Concomitant]
     Active Substance: ACETAMINOPHEN\DEXTROMETHORPHAN HYDROBROMIDE\DOXYLAMINE SUCCINATE
     Indication: UPPER RESPIRATORY TRACT INFECTION
     Route: 048
     Dates: start: 20160923
  14. RAMELTEON [Concomitant]
     Active Substance: RAMELTEON
     Indication: INSOMNIA
     Route: 048
     Dates: start: 20170109
  15. POTASSIUM PHOSPHATE                /00493501/ [Concomitant]
     Active Substance: POTASSIUM PHOSPHATE, DIBASIC
     Indication: HYPOKALAEMIA
     Route: 042
     Dates: start: 20170109
  16. TIRABRUTINIB [Suspect]
     Active Substance: TIRABRUTINIB
     Dosage: UNK
     Route: 048
     Dates: start: 20161209, end: 20170125
  17. OFLOXACIN. [Concomitant]
     Active Substance: OFLOXACIN
     Indication: EAR DISCOMFORT
     Route: 001
     Dates: start: 20170106, end: 20170108
  18. PROCHLORPERAZINE. [Concomitant]
     Active Substance: PROCHLORPERAZINE
     Indication: VOMITING
     Route: 048
     Dates: start: 20170109
  19. POTASSIUM CHLORIDE. [Concomitant]
     Active Substance: POTASSIUM CHLORIDE
     Indication: HYPOKALAEMIA
     Dosage: UNK
     Route: 048
     Dates: start: 20170109

REACTIONS (5)
  - Streptococcal bacteraemia [Recovered/Resolved]
  - Sinusitis [Recovered/Resolved]
  - Pneumonia [Recovered/Resolved]
  - Aortic stenosis [Recovered/Resolved]
  - Hypervolaemia [Recovered/Resolved]

NARRATIVE: CASE EVENT DATE: 20170108
